FAERS Safety Report 4991910-5 (Version None)
Quarter: 2006Q2

REPORT INFORMATION
  Report Type: 
  Country: None (occurrence: None)
  Receive Date: 20060504
  Receipt Date: 20060221
  Transmission Date: 20061013
  Serious: Yes (Hospitalization)
  Sender: FDA-Public Use
  Company Number: DE-MERCK-0602DEU00130

PATIENT
  Age: 67 Year
  Sex: Male

DRUGS (3)
  1. VIOXX [Suspect]
     Indication: RADICULAR SYNDROME
     Route: 048
     Dates: start: 20021101, end: 20020101
  2. VIOXX [Suspect]
     Route: 048
     Dates: start: 20030401, end: 20030401
  3. VIOXX [Suspect]
     Route: 048
     Dates: start: 20030401, end: 20030410

REACTIONS (4)
  - CEREBROVASCULAR ACCIDENT [None]
  - HYPERLIPIDAEMIA [None]
  - MICROANGIOPATHY [None]
  - OSTEOARTHRITIS [None]
